FAERS Safety Report 17487561 (Version 5)
Quarter: 2020Q3

REPORT INFORMATION
  Report Type: Spontaneous
  Country: CA (occurrence: CA)
  Receive Date: 20200303
  Receipt Date: 20200722
  Transmission Date: 20201102
  Serious: Yes (Other)
  Sender: FDA-Public Use
  Company Number: CA-PFIZER INC-2018434128

PATIENT
  Sex: Female

DRUGS (30)
  1. FTP?DOMPERIDONE MALEATE [Suspect]
     Active Substance: DOMPERIDONE MALEATE
     Dosage: 10 MILLIGRAM
     Route: 048
  2. PROGESTERONE. [Suspect]
     Active Substance: PROGESTERONE
     Dosage: UNK
     Route: 065
  3. IMURAN [Suspect]
     Active Substance: AZATHIOPRINE
     Dosage: UNK
     Route: 065
  4. DOMPERIDONE MALEATE [Suspect]
     Active Substance: DOMPERIDONE MALEATE
     Dosage: 10 MG
     Route: 048
  5. DOMPERIDONE MALEATE [Suspect]
     Active Substance: DOMPERIDONE MALEATE
     Dosage: UNK
     Route: 065
  6. PANTOPRAZOLE [Suspect]
     Active Substance: PANTOPRAZOLE
     Dosage: UNK
     Route: 065
  7. FTP?DOMPERIDONE MALEATE [Suspect]
     Active Substance: DOMPERIDONE MALEATE
     Dosage: UNK
     Route: 065
  8. REMICADE [Suspect]
     Active Substance: INFLIXIMAB
     Indication: COLITIS ULCERATIVE
     Dosage: 600 MILLIGRAM
     Route: 042
  9. RANITIDINE. [Suspect]
     Active Substance: RANITIDINE
     Dosage: UNK
     Route: 065
  10. AZATHIOPRINE. [Suspect]
     Active Substance: AZATHIOPRINE
     Dosage: UNK
     Route: 065
  11. MESALAZINE [Suspect]
     Active Substance: MESALAMINE
     Dosage: UNK
     Route: 065
  12. PANTOPRAZOLE SODIUM. [Suspect]
     Active Substance: PANTOPRAZOLE SODIUM
     Dosage: UNK
     Route: 065
  13. CRINONE [Suspect]
     Active Substance: PROGESTERONE
     Dosage: UNK
     Route: 065
  14. PARACETAMOL AND CODEINE PHOSPHATE (I) [Suspect]
     Active Substance: ACETAMINOPHEN\CODEINE PHOSPHATE
     Dosage: UNK
     Route: 065
  15. MESALAZINE [Suspect]
     Active Substance: MESALAMINE
     Dosage: UNK
     Route: 065
  16. DOMPERIDONE [Suspect]
     Active Substance: DOMPERIDONE
     Dosage: UNK
     Route: 065
  17. MESALAMINE. [Suspect]
     Active Substance: MESALAMINE
     Dosage: UNK
     Route: 065
  18. FOLIC ACID. [Concomitant]
     Active Substance: FOLIC ACID
     Dosage: UNK
     Route: 065
  19. IRON [Concomitant]
     Active Substance: IRON
     Dosage: UNK
     Route: 065
  20. APO?RANITIDINE [Suspect]
     Active Substance: RANITIDINE
     Dosage: UNK
     Route: 065
  21. FTP?DOMPERIDONE MALEATE [Suspect]
     Active Substance: DOMPERIDONE MALEATE
     Dosage: 10 MILLIGRAM
     Route: 048
  22. FTP?DOMPERIDONE MALEATE [Suspect]
     Active Substance: DOMPERIDONE MALEATE
     Dosage: 10 MILLIGRAM
     Route: 048
  23. DOMPERIDONE MALEATE [Suspect]
     Active Substance: DOMPERIDONE MALEATE
     Dosage: 10 MG
     Route: 048
  24. AZATHIOPRINE. [Suspect]
     Active Substance: AZATHIOPRINE
     Dosage: UNK
     Route: 065
  25. REMICADE [Suspect]
     Active Substance: INFLIXIMAB
     Dosage: 600 MILLIGRAM
  26. MESALAMINE. [Suspect]
     Active Substance: MESALAMINE
     Dosage: UNK
     Route: 065
  27. APO?RANITIDINE [Suspect]
     Active Substance: RANITIDINE
     Dosage: UNK
     Route: 065
  28. PANTOPRAZOLE MAGNESIUM [Suspect]
     Active Substance: PANTOPRAZOLE MAGNESIUM
     Dosage: UNK
     Route: 065
  29. ACETAMINOPHEN W/CODEINE PHOSPHATE [Suspect]
     Active Substance: ACETAMINOPHEN\CODEINE PHOSPHATE
     Dosage: UNK
     Route: 065
  30. MEZAVANT [Suspect]
     Active Substance: MESALAMINE
     Dosage: UNK
     Route: 065

REACTIONS (6)
  - Exposure during pregnancy [Recovered/Resolved]
  - Off label use [Recovered/Resolved]
  - Product use issue [Recovered/Resolved]
  - Premature labour [Recovered/Resolved]
  - Pregnancy [Unknown]
  - Drug hypersensitivity [Recovered/Resolved]
